FAERS Safety Report 15107602 (Version 1)
Quarter: 2018Q3

REPORT INFORMATION
  Report Type: Spontaneous
  Country: US (occurrence: US)
  Receive Date: 20180704
  Receipt Date: 20180704
  Transmission Date: 20181010
  Serious: No
  Sender: FDA-Public Use
  Company Number: US-PFIZER INC-2018269374

PATIENT
  Age: 70 Year
  Sex: Female

DRUGS (2)
  1. XANAX [Suspect]
     Active Substance: ALPRAZOLAM
     Dosage: 1.5 DF, AS NEEDED (1.5 TABLETS/DAY ONLY IF NEEDED )
  2. XANAX [Suspect]
     Active Substance: ALPRAZOLAM
     Indication: ANXIETY
     Dosage: 3 DF, DAILY

REACTIONS (3)
  - Throat tightness [Recovering/Resolving]
  - Hypopnoea [Recovering/Resolving]
  - Intentional product use issue [Unknown]
